FAERS Safety Report 6690788-1 (Version None)
Quarter: 2010Q2

REPORT INFORMATION
  Report Type: 
  Country: None (occurrence: None)
  Receive Date: 20100421
  Receipt Date: 20100421
  Transmission Date: 20101027
  Serious: Yes (Hospitalization, Other)
  Sender: FDA-Public Use
  Company Number: US-ABBOTT-10P-163-0636682-00

PATIENT
  Sex: Female
  Weight: 79.45 kg

DRUGS (16)
  1. TRILIPIX [Suspect]
     Indication: BLOOD CHOLESTEROL INCREASED
     Route: 048
     Dates: start: 20100319, end: 20100402
  2. CRESTOR [Suspect]
     Indication: BLOOD CHOLESTEROL INCREASED
     Route: 048
  3. ASPIRIN [Suspect]
     Indication: DRUG USE FOR UNKNOWN INDICATION
     Route: 048
     Dates: start: 20090101, end: 20100405
  4. PLAVIX [Concomitant]
     Indication: STENT PLACEMENT
     Route: 048
  5. REQUIP [Concomitant]
     Indication: RESTLESS LEGS SYNDROME
     Route: 048
  6. WELLBUTRIN [Concomitant]
     Indication: DEPRESSION
     Route: 048
  7. REMERON [Concomitant]
     Indication: DEPRESSION
     Route: 048
  8. SERZONE [Concomitant]
     Indication: DEPRESSION
     Route: 048
  9. NEURONTIN [Concomitant]
     Indication: NEUROPATHY PERIPHERAL
  10. FOLIC ACID [Concomitant]
     Indication: FOLATE DEFICIENCY
  11. TIGAN [Concomitant]
     Indication: NAUSEA
  12. ZANAFLEX [Concomitant]
     Indication: NECK PAIN
  13. ZANAFLEX [Concomitant]
     Indication: BACK PAIN
  14. OXYCODONE [Concomitant]
     Indication: POSTOPERATIVE ANALGESIA
     Route: 048
  15. ZANTAC [Concomitant]
     Indication: DRUG USE FOR UNKNOWN INDICATION
     Route: 048
  16. COQ10 [Concomitant]
     Indication: DRUG USE FOR UNKNOWN INDICATION
     Route: 048

REACTIONS (11)
  - CHEST DISCOMFORT [None]
  - CHEST PAIN [None]
  - CONTUSION [None]
  - DYSPNOEA [None]
  - EPISTAXIS [None]
  - HAEMATOCHEZIA [None]
  - NAUSEA [None]
  - OROPHARYNGEAL PAIN [None]
  - OXYGEN SATURATION ABNORMAL [None]
  - PYREXIA [None]
  - VOMITING [None]
